FAERS Safety Report 6650048-1 (Version None)
Quarter: 2010Q1

REPORT INFORMATION
  Report Type: 
  Country: None (occurrence: None)
  Receive Date: 20100325
  Receipt Date: 20091124
  Transmission Date: 20100710
  Serious: No
  Sender: FDA-Public Use
  Company Number: US-KINGPHARMUSA00001-K200901484

PATIENT
  Age: 70 Year
  Sex: Female

DRUGS (1)
  1. ALTACE [Suspect]
     Dosage: ^LOWEST^
     Route: 048
     Dates: start: 20091001, end: 20091101

REACTIONS (2)
  - COUGH [None]
  - INCREASED UPPER AIRWAY SECRETION [None]
